FAERS Safety Report 6965400-4 (Version None)
Quarter: 2010Q3

REPORT INFORMATION
  Report Type: 
  Country: None (occurrence: None)
  Receive Date: 20100903
  Receipt Date: 20100831
  Transmission Date: 20110219
  Serious: Yes (Hospitalization)
  Sender: FDA-Public Use
  Company Number: A0878677A

PATIENT
  Age: 77 Year
  Sex: Male

DRUGS (17)
  1. AVANDIA [Suspect]
     Dosage: 8MG PER DAY
     Route: 048
     Dates: start: 20040101, end: 20060601
  2. NEURONTIN [Concomitant]
  3. POTASSIUM CHLORIDE [Concomitant]
  4. GABAPENTIN [Concomitant]
  5. STARLIX [Concomitant]
  6. FUROSEMIDE [Concomitant]
  7. METOPROLOL TARTRATE [Concomitant]
  8. FLOMAX [Concomitant]
  9. JANUVIA [Concomitant]
  10. ALPRAZOLAM [Concomitant]
  11. TRAZODONE HCL [Concomitant]
  12. ISOSORBIDE [Concomitant]
  13. CARDIZEM [Concomitant]
  14. FOLIC ACID [Concomitant]
  15. VITAMIN B6 [Concomitant]
  16. VITAMIN B-12 [Concomitant]
  17. BIOTIN [Concomitant]

REACTIONS (4)
  - ARRHYTHMIA [None]
  - CARDIAC PACEMAKER INSERTION [None]
  - STENT PLACEMENT [None]
  - THROMBOSIS [None]
